FAERS Safety Report 5752281-X (Version None)
Quarter: 2008Q2

REPORT INFORMATION
  Report Type: 
  Country: None (occurrence: None)
  Receive Date: 20080529
  Receipt Date: 20080514
  Transmission Date: 20081010
  Serious: Yes (Life-Threatening)
  Sender: FDA-Public Use
  Company Number: DK-MERCK-0210DNK00027

PATIENT
  Age: 37 Year
  Sex: Female

DRUGS (3)
  1. RIZATRIPTAN BENZOATE [Suspect]
     Indication: MIGRAINE
     Route: 048
     Dates: start: 20020101
  2. CITALOPRAM HYDROBROMIDE [Suspect]
     Indication: DEPRESSION
     Route: 048
     Dates: start: 20020813
  3. ETHINYL ESTRADIOL AND GESTODENE [Concomitant]
     Route: 065
     Dates: start: 20010405

REACTIONS (2)
  - DRUG INTERACTION [None]
  - SEROTONIN SYNDROME [None]
